FAERS Safety Report 13782680 (Version 2)
Quarter: 2018Q1

REPORT INFORMATION
  Report Type: Spontaneous
  Country: FR (occurrence: FR)
  Receive Date: 20170724
  Receipt Date: 20180327
  Transmission Date: 20180508
  Serious: Yes (Other)
  Sender: FDA-Public Use
  Company Number: FR-SA-2017SA126954

PATIENT
  Age: 84 Year
  Sex: Male
  Weight: 93.2 kg

DRUGS (10)
  1. ORBENINE [Concomitant]
     Active Substance: CLOXACILLIN SODIUM
     Route: 065
     Dates: start: 201706
  2. KARDEGIC [Concomitant]
     Active Substance: ASPIRIN DL-LYSINE
     Route: 065
     Dates: start: 201706
  3. RIFADINE [Suspect]
     Active Substance: RIFAMPIN
     Indication: ENDOCARDITIS
     Route: 048
     Dates: start: 20170616, end: 20170621
  4. CEFAZOLINE [Concomitant]
     Active Substance: CEFAZOLIN SODIUM
     Indication: ENDOCARDITIS
     Dosage: IV DRIP
     Route: 041
     Dates: start: 20170620
  5. AMIODARONE [Concomitant]
     Active Substance: AMIODARONE
     Route: 065
     Dates: start: 201706
  6. VANCOMYCINE [Concomitant]
     Active Substance: VANCOMYCIN
     Dosage: BETWEEN 11 AND 16-JUN STARTED
     Route: 065
     Dates: start: 201706
  7. GENTAMICIN. [Concomitant]
     Active Substance: GENTAMICIN
     Route: 065
     Dates: start: 201706
  8. FUROSEMIDE. [Concomitant]
     Active Substance: FUROSEMIDE
     Route: 065
     Dates: start: 201706
  9. TAVANIC [Concomitant]
     Active Substance: LEVOFLOXACIN
     Route: 065
     Dates: start: 20170621
  10. BISOPROLOL [Concomitant]
     Active Substance: BISOPROLOL
     Route: 065
     Dates: start: 201706

REACTIONS (2)
  - Jaundice [Recovered/Resolved]
  - Cholestasis [Not Recovered/Not Resolved]

NARRATIVE: CASE EVENT DATE: 20170621
